FAERS Safety Report 9730395 (Version 1)
Quarter: 2013Q4

REPORT INFORMATION
  Report Type: Spontaneous
  Country: GB (occurrence: GB)
  Receive Date: 20131202
  Receipt Date: 20131202
  Transmission Date: 20140711
  Serious: Yes (Other)
  Sender: FDA-Public Use
  Company Number: GB-ELI_LILLY_AND_COMPANY-GB201311005900

PATIENT
  Age: 53 Year
  Sex: Male

DRUGS (5)
  1. CYMBALTA [Suspect]
     Indication: PRODUCT USED FOR UNKNOWN INDICATION
     Dosage: 60 MG, UNKNOWN
     Route: 048
  2. CLOZARIL [Suspect]
     Indication: SCHIZOPHRENIA
     Dosage: UNK
     Route: 048
     Dates: start: 20010701
  3. CLOZARIL [Suspect]
     Dosage: 225 MG, UNK
     Route: 048
  4. CLOZARIL [Suspect]
     Dosage: 300 MG, UNK
     Route: 048
  5. AMINOPHYLLINE [Suspect]
     Dosage: 300 MG, UNK
     Route: 048

REACTIONS (2)
  - White blood cell count increased [Recovered/Resolved]
  - Anaemia [Recovered/Resolved]
